FAERS Safety Report 8162310-4 (Version None)
Quarter: 2012Q1

REPORT INFORMATION
  Report Type: 
  Country: None (occurrence: None)
  Receive Date: 20120224
  Receipt Date: 20110208
  Transmission Date: 20120608
  Serious: No
  Sender: FDA-Public Use
  Company Number: US-MYLANLABS-2011S1002719

PATIENT
  Age: 50 Year
  Sex: Female

DRUGS (3)
  1. TEKTURNA [Concomitant]
  2. CLONIDINE [Concomitant]
  3. HYDROCHLOROTHIAZIDE [Suspect]
     Indication: BLOOD PRESSURE INCREASED
     Dates: start: 19910101, end: 19910101

REACTIONS (4)
  - SCAR [None]
  - RASH [None]
  - ERYTHEMA [None]
  - HYPERSENSITIVITY [None]
